FAERS Safety Report 10904661 (Version 1)
Quarter: 2015Q1

REPORT INFORMATION
  Report Type: Spontaneous
  Country: IT (occurrence: None)
  Receive Date: 20150306
  Receipt Date: 20150306
  Transmission Date: 20150721
  Serious: Yes (Hospitalization)
  Sender: FDA-Public Use
  Company Number: 2762972

PATIENT
  Age: 28 Year
  Sex: Male

DRUGS (3)
  1. CYTARABINE. [Suspect]
     Active Substance: CYTARABINE
     Indication: BURKITT^S LYMPHOMA
     Dosage: CYCLICAL
     Route: 042
     Dates: start: 20150111, end: 20150112
  2. MABTHERA [Suspect]
     Active Substance: RITUXIMAB
     Indication: BURKITT^S LYMPHOMA
     Dosage: CYCLICAL
     Route: 042
     Dates: start: 20150113, end: 20150113
  3. METHOTREXATE (METHOTREXATE SODIUM) [Suspect]
     Active Substance: METHOTREXATE SODIUM
     Indication: BURKITT^S LYMPHOMA
     Dosage: CYCLICAL
     Route: 042
     Dates: start: 20150110, end: 20150110

REACTIONS (7)
  - Haemoglobin decreased [None]
  - Platelet count decreased [None]
  - White blood cell count decreased [None]
  - Pneumonitis [None]
  - Pseudomonas test positive [None]
  - Aspergillus test positive [None]
  - Febrile neutropenia [None]

NARRATIVE: CASE EVENT DATE: 20150119
